FAERS Safety Report 6624271-6 (Version None)
Quarter: 2010Q1

REPORT INFORMATION
  Report Type: 
  Country: None (occurrence: None)
  Receive Date: 20100310
  Receipt Date: 20091102
  Transmission Date: 20100710
  Serious: No
  Sender: FDA-Public Use
  Company Number: US-BIOGENIDEC-2009BI035624

PATIENT
  Age: 58 Year
  Sex: Female

DRUGS (2)
  1. AVONEX [Suspect]
     Indication: MULTIPLE SCLEROSIS
     Route: 030
     Dates: start: 20050731, end: 20070101
  2. AVONEX [Suspect]
     Route: 030
     Dates: start: 20091030

REACTIONS (4)
  - ARTHRALGIA [None]
  - IRRITABILITY [None]
  - MYALGIA [None]
  - PAIN [None]
